FAERS Safety Report 10978340 (Version 2)
Quarter: 2015Q2

REPORT INFORMATION
  Report Type: Spontaneous
  Country: US (occurrence: US)
  Receive Date: 20150402
  Receipt Date: 20150430
  Transmission Date: 20150821
  Serious: Yes (Hospitalization, Other)
  Sender: FDA-Public Use
  Company Number: US-SA-2015SA039653

PATIENT
  Age: 78 Year
  Sex: Female
  Weight: 83.5 kg

DRUGS (10)
  1. GABAPENTIN. [Concomitant]
     Active Substance: GABAPENTIN
     Dates: start: 2015
  2. PANTHENOL/RETINOL/THIAMINE HYDROCHLORIDE/ASCORBIC ACID/ERGOCALCIFEROL/FOLIC ACID/RIBOFLAVIN/NICOTINA [Concomitant]
     Dates: start: 2009
  3. LOSARTAN [Concomitant]
     Active Substance: LOSARTAN
     Dates: start: 2015
  4. POTASSIUM [Concomitant]
     Active Substance: POTASSIUM
     Dates: start: 2015
  5. LANTUS [Suspect]
     Active Substance: INSULIN GLARGINE
     Indication: DIABETES MELLITUS
     Dosage: 1-30 MG
     Route: 065
     Dates: start: 2008
  6. GEMFIBROZIL. [Concomitant]
     Active Substance: GEMFIBROZIL
     Dates: start: 2009
  7. ASPIRIN. [Concomitant]
     Active Substance: ASPIRIN
     Dates: start: 2015
  8. METFORMIN [Concomitant]
     Active Substance: METFORMIN HYDROCHLORIDE
     Indication: DIABETES MELLITUS
     Dates: start: 2009
  9. HYDRALAZINE [Concomitant]
     Active Substance: HYDRALAZINE HYDROCHLORIDE
     Indication: CEREBROVASCULAR ACCIDENT
     Dosage: STRENGTH: 50MG
     Dates: start: 2009
  10. GLIMEPIRIDE. [Concomitant]
     Active Substance: GLIMEPIRIDE
     Indication: CEREBROVASCULAR ACCIDENT
     Dates: start: 2009

REACTIONS (1)
  - Cerebrovascular accident [Unknown]

NARRATIVE: CASE EVENT DATE: 20150105
